FAERS Safety Report 23537247 (Version 2)
Quarter: 2024Q3

REPORT INFORMATION
  Report Type: Report from Study
  Country: US (occurrence: US)
  Receive Date: 20240219
  Receipt Date: 20240731
  Transmission Date: 20241016
  Serious: No
  Sender: AURINIA PHARMACEUTICALS
  Company Number: US-AURINIA PHARMACEUTICALS INC.-AUR-004447

PATIENT
  Sex: Female

DRUGS (14)
  1. LUPKYNIS [Suspect]
     Active Substance: VOCLOSPORIN
     Indication: Lupus nephritis
     Dosage: 23.7 MILLIGRAM, BID
     Route: 048
     Dates: start: 20230927
  2. LUPKYNIS [Suspect]
     Active Substance: VOCLOSPORIN
     Dosage: 23.7 MILLIGRAM, BID
     Route: 048
     Dates: start: 20231101
  3. LUPKYNIS [Suspect]
     Active Substance: VOCLOSPORIN
     Dosage: UNK
     Route: 048
     Dates: end: 202401
  4. BIOTIN [Concomitant]
     Active Substance: BIOTIN
     Indication: Hair disorder
     Dosage: UNK
  5. BIOTIN [Concomitant]
     Active Substance: BIOTIN
     Indication: Skin disorder
  6. BIOTIN [Concomitant]
     Active Substance: BIOTIN
     Indication: Nail disorder
  7. CALCIUM [Concomitant]
     Active Substance: CALCIUM
     Indication: Product used for unknown indication
     Dosage: UNK
  8. MAGNESIUM [Concomitant]
     Active Substance: MAGNESIUM
     Indication: Product used for unknown indication
     Dosage: UNK
  9. FOLIC ACID [Concomitant]
     Active Substance: FOLIC ACID
     Indication: Product used for unknown indication
     Dosage: UNK
  10. ZINC [Concomitant]
     Active Substance: ZINC
     Indication: Product used for unknown indication
     Dosage: UNK
  11. VITAMIN B6 [Concomitant]
     Active Substance: PYRIDOXINE HYDROCHLORIDE
     Indication: Product used for unknown indication
     Dosage: UNK
  12. .ALPHA.-TOCOPHEROL [Concomitant]
     Active Substance: .ALPHA.-TOCOPHEROL
     Indication: Hair disorder
  13. .ALPHA.-TOCOPHEROL [Concomitant]
     Active Substance: .ALPHA.-TOCOPHEROL
     Indication: Skin disorder
  14. .ALPHA.-TOCOPHEROL [Concomitant]
     Active Substance: .ALPHA.-TOCOPHEROL
     Indication: Nail disorder

REACTIONS (12)
  - Hypersensitivity [Unknown]
  - Pruritus [Unknown]
  - Dizziness [Unknown]
  - Pain of skin [Unknown]
  - Rash [Unknown]
  - Breast pain [Unknown]
  - Pollakiuria [Unknown]
  - Fatigue [Unknown]
  - Alopecia [Recovering/Resolving]
  - Abdominal pain upper [Unknown]
  - Product dose omission issue [Unknown]
  - Intentional underdose [Unknown]
